FAERS Safety Report 20432254 (Version 1)
Quarter: 2022Q1

REPORT INFORMATION
  Report Type: Report from Study
  Country: US (occurrence: None)
  Receive Date: 20220204
  Receipt Date: 20220204
  Transmission Date: 20220424
  Serious: Yes (Death)
  Sender: FDA-Public Use
  Company Number: US-ROCHE-2887121

PATIENT
  Age: 69 Year
  Sex: Male
  Weight: 85.7 kg

DRUGS (4)
  1. ATEZOLIZUMAB [Suspect]
     Active Substance: ATEZOLIZUMAB
     Indication: Metastatic squamous cell carcinoma
     Dosage: ON 24/MAY/2021, RECEIVED LAST DOSE OF ATEZOLIZUMAB PRIOR TO EVENT
     Route: 041
     Dates: start: 20210503
  2. CISPLATIN [Suspect]
     Active Substance: CISPLATIN
     Indication: Metastatic squamous cell carcinoma
     Dosage: ON 07/JUN/2021 MOST RECENT DOSE OF CISPLATIN 289 MG TAKEN
     Route: 065
  3. HYDROMORPHONE [Concomitant]
     Active Substance: HYDROMORPHONE
  4. ZOLEDRONIC ACID [Concomitant]
     Active Substance: ZOLEDRONIC ACID
     Dates: start: 20210701

REACTIONS (1)
  - Disease progression [Fatal]

NARRATIVE: CASE EVENT DATE: 20210714
